FAERS Safety Report 21072295 (Version 1)
Quarter: 2022Q3

REPORT INFORMATION
  Report Type: Spontaneous
  Country: US (occurrence: US)
  Receive Date: 20220712
  Receipt Date: 20220712
  Transmission Date: 20221026
  Serious: Yes (Other)
  Sender: FDA-Public Use
  Company Number: US-FOUNDATIONCONSUMERHC-2022-US-009750

PATIENT
  Age: 21 Year
  Sex: Female
  Weight: 52.16 kg

DRUGS (1)
  1. TAKE ACTION [Suspect]
     Active Substance: LEVONORGESTREL
     Indication: Post coital contraception
     Dosage: TAKE ACTION 1.5MG X 3 DOSES, AFTERA 1.5MG X 1 DOSE
     Route: 048
     Dates: start: 20220325, end: 20220411

REACTIONS (5)
  - Intentional product misuse [Recovered/Resolved]
  - Product use in unapproved indication [Recovered/Resolved]
  - Pregnancy after post coital contraception [Not Recovered/Not Resolved]
  - Drug ineffective [Recovered/Resolved]
  - Exposure during pregnancy [Recovered/Resolved]

NARRATIVE: CASE EVENT DATE: 20220325
